FAERS Safety Report 14507818 (Version 7)
Quarter: 2018Q4

REPORT INFORMATION
  Report Type: Report from Study
  Country: FR (occurrence: FR)
  Receive Date: 20180208
  Receipt Date: 20181129
  Transmission Date: 20190204
  Serious: Yes (Hospitalization)
  Sender: FDA-Public Use
  Company Number: FR-B.I. PHARMACEUTICALS,INC./RIDGEFIELD-2017-BI-009307

PATIENT
  Age: 42 Year
  Sex: Male
  Weight: 60 kg

DRUGS (15)
  1. BIBF 1120 [Suspect]
     Active Substance: NINTEDANIB
     Indication: INTERSTITIAL LUNG DISEASE
     Route: 048
     Dates: start: 20180119
  2. MOTILIUM [Concomitant]
     Active Substance: DOMPERIDONE
     Route: 048
  3. ESOMEPRAZOLE. [Concomitant]
     Active Substance: ESOMEPRAZOLE MAGNESIUM
     Indication: SYSTEMIC SCLERODERMA
     Route: 048
  4. KETOPROFEN. [Concomitant]
     Active Substance: KETOPROFEN
     Indication: SYSTEMIC SCLERODERMA
     Route: 048
     Dates: start: 2014, end: 20160629
  5. SPECIAFOLDINE [Concomitant]
     Active Substance: FOLIC ACID
     Indication: SYSTEMIC SCLERODERMA
     Route: 048
     Dates: start: 2013
  6. INEXIUM [Concomitant]
     Active Substance: ESOMEPRAZOLE
     Indication: SYSTEMIC SCLERODERMA
     Route: 048
     Dates: start: 2014
  7. LOVENOX [Concomitant]
     Active Substance: ENOXAPARIN SODIUM
     Indication: PRODUCT USED FOR UNKNOWN INDICATION
     Route: 065
     Dates: start: 20171104
  8. RITUXIMAB. [Suspect]
     Active Substance: RITUXIMAB
     Indication: SYSTEMIC SCLERODERMA
     Route: 042
     Dates: start: 20171015
  9. CORTANCYL [Suspect]
     Active Substance: PREDNISONE
     Route: 048
  10. REVATIO [Concomitant]
     Active Substance: SILDENAFIL CITRATE
     Indication: SYSTEMIC SCLERODERMA
     Route: 048
     Dates: start: 20171104
  11. IMETH [Suspect]
     Active Substance: METHOTREXATE SODIUM
     Indication: SYSTEMIC SCLERODERMA
     Route: 048
     Dates: start: 2013
  12. CORTANCYL [Suspect]
     Active Substance: PREDNISONE
     Indication: SYSTEMIC SCLERODERMA
     Route: 048
     Dates: start: 20140624
  13. BIBF 1120 [Suspect]
     Active Substance: NINTEDANIB
     Indication: SYSTEMIC SCLERODERMA
     Route: 048
     Dates: start: 20160530, end: 201710
  14. LOXEN [NICARDIPINE HYDROCHLORIDE] [Concomitant]
     Active Substance: NICARDIPINE HYDROCHLORIDE
     Indication: SYSTEMIC SCLERODERMA
     Route: 048
     Dates: start: 2013
  15. MOTILIUM [Concomitant]
     Active Substance: DOMPERIDONE
     Indication: SYSTEMIC SCLERODERMA
     Route: 048
     Dates: start: 2014

REACTIONS (3)
  - Device related infection [Recovered/Resolved]
  - Urinary tract infection [Recovered/Resolved]
  - Sepsis [Recovered/Resolved]

NARRATIVE: CASE EVENT DATE: 20160610
